FAERS Safety Report 4883341-3 (Version None)
Quarter: 2006Q1

REPORT INFORMATION
  Report Type: 
  Country: None (occurrence: None)
  Receive Date: 20060118
  Receipt Date: 20060111
  Transmission Date: 20060701
  Serious: Yes (Hospitalization)
  Sender: FDA-Public Use
  Company Number: GB-GLAXOSMITHKLINE-B0406168A

PATIENT

DRUGS (2)
  1. AVANDIA [Suspect]
     Route: 048
  2. GLYCOSIDE [Concomitant]

REACTIONS (1)
  - MUSCLE SPASMS [None]
